FAERS Safety Report 8233485-3 (Version None)
Quarter: 2012Q1

REPORT INFORMATION
  Report Type: 
  Country: None (occurrence: None)
  Receive Date: 20120326
  Receipt Date: 20120322
  Transmission Date: 20120608
  Serious: Yes (Death, Hospitalization)
  Sender: FDA-Public Use
  Company Number: US-B.I. PHARMACEUTICALS,INC./RIDGEFIELD-2011-BP-27416BP

PATIENT
  Age: 82 Year

DRUGS (7)
  1. PRADAXA [Suspect]
     Indication: ATRIAL FIBRILLATION
     Dosage: 300 MG
     Route: 048
     Dates: start: 20110601
  2. SPIRONOLACTONE [Concomitant]
  3. DIOVAN [Concomitant]
  4. LASIX [Concomitant]
  5. ACTONEL [Concomitant]
  6. AMIODARONE HYDROCHLORIDE [Concomitant]
  7. LACTONEL [Concomitant]

REACTIONS (1)
  - HAEMORRHAGIC STROKE [None]
